FAERS Safety Report 8777778 (Version 2)
Quarter: 2012Q4

REPORT INFORMATION
  Report Type: 
  Country: AU (occurrence: AU)
  Receive Date: 20120911
  Receipt Date: 20120911
  Transmission Date: 20130627
  Serious: Yes (Hospitalization)
  Sender: FDA-Public Use
  Company Number: PHHY2012AU057694

PATIENT
  Sex: Male

DRUGS (2)
  1. SANDOSTATIN LAR [Suspect]
     Indication: CARCINOID SYNDROME
     Dosage: 20 mg, UNK
     Route: 030
  2. SANDOSTATIN LAR [Suspect]
     Dosage: 20 mg, UNK
     Route: 030
     Dates: start: 20120606

REACTIONS (2)
  - Malaise [Unknown]
  - Dizziness [Unknown]
